FAERS Safety Report 8607466 (Version 3)
Quarter: 2013Q3

REPORT INFORMATION
  Report Type: Spontaneous
  Country: US (occurrence: US)
  Receive Date: 20120611
  Receipt Date: 20130923
  Transmission Date: 20140515
  Serious: Yes (Other)
  Sender: FDA-Public Use
  Company Number: US-ASTRAZENECA-2012SE35201

PATIENT
  Age: 18410 Day
  Sex: Female
  Weight: 68.9 kg

DRUGS (7)
  1. NEXIUM [Suspect]
     Indication: REGURGITATION
     Dosage: ONCE A DAY
     Route: 048
     Dates: start: 2003, end: 2011
  2. NEXIUM [Suspect]
     Indication: REGURGITATION
     Dosage: BEFORE BREAKFAST
     Route: 048
     Dates: start: 20120818
  3. CIPRO [Concomitant]
     Dosage: TWICE A DAY
  4. ULTRACET [Concomitant]
     Indication: PAIN
     Dosage: 3X 1 DAY AS NEEDED
  5. PREVACID [Concomitant]
     Indication: GASTRIC DISORDER
  6. WELLBUTRIN [Concomitant]
     Indication: AFFECTIVE DISORDER
  7. FLEXERIL [Concomitant]
     Indication: MUSCLE SPASMS
     Dosage: 10 MG AS NEEDED

REACTIONS (15)
  - Adrenal insufficiency [Unknown]
  - Osteoporosis [Unknown]
  - Osteoporotic fracture [Unknown]
  - Foot fracture [Unknown]
  - Osteoarthritis [Unknown]
  - Arthritis [Unknown]
  - Bulimia nervosa [Unknown]
  - Calcium deficiency [Unknown]
  - Hypothyroidism [Unknown]
  - Rheumatoid arthritis [Unknown]
  - Vitamin D deficiency [Unknown]
  - Osteopenia [Unknown]
  - Spinal osteoarthritis [Unknown]
  - Back disorder [Unknown]
  - Depression [Unknown]
